FAERS Safety Report 4432427-6 (Version None)
Quarter: 2004Q3

REPORT INFORMATION
  Report Type: 
  Country: None (occurrence: None)
  Receive Date: 20040825
  Receipt Date: 20040816
  Transmission Date: 20050211
  Serious: Yes (Other)
  Sender: FDA-Public Use
  Company Number: PHNU2004DE02893

PATIENT
  Sex: Male

DRUGS (3)
  1. SANDIMMUNE [Suspect]
     Indication: LUNG TRANSPLANT
     Dosage: 235MG/DAY
     Route: 048
     Dates: start: 19980101
  2. DECORTIN [Suspect]
     Indication: LUNG TRANSPLANT
     Dates: start: 19980101
  3. IMUREK [Concomitant]
     Indication: LUNG TRANSPLANT
     Dates: start: 19980101

REACTIONS (3)
  - MUSCLE ATROPHY [None]
  - POLYNEUROPATHY [None]
  - RENAL FAILURE [None]
